FAERS Safety Report 5596477-9 (Version None)
Quarter: 2008Q1

REPORT INFORMATION
  Report Type: 
  Country: None (occurrence: None)
  Receive Date: 20080118
  Receipt Date: 20080109
  Transmission Date: 20080703
  Serious: Yes (Hospitalization, Other)
  Sender: FDA-Public Use
  Company Number: JP-PFIZER INC-2007080018

PATIENT
  Sex: Female
  Weight: 50 kg

DRUGS (12)
  1. GENOTROPIN [Suspect]
     Indication: GROWTH HORMONE DEFICIENCY
     Dosage: TEXT:0.1 TO 0.2 MG-FREQ:DAILY; 1.1 MG / WEEKLY
     Route: 058
  2. GENOTROPIN [Suspect]
     Dosage: FREQ:1.2 MG / WEEKLY
     Route: 058
  3. CORTRIL [Concomitant]
     Route: 048
  4. ALFACALCIDOL [Concomitant]
     Route: 048
  5. GLAKAY [Concomitant]
     Route: 048
  6. CALCIUM LACTATE [Concomitant]
     Route: 048
  7. LIPITOR [Concomitant]
     Route: 048
  8. PAXIL [Concomitant]
  9. MEILAX [Concomitant]
  10. AMOBAN [Concomitant]
     Route: 048
  11. LENDORMIN [Concomitant]
     Route: 048
  12. FLUVOXAMINE MALEATE [Concomitant]
     Route: 048
     Dates: start: 20070719, end: 20070907

REACTIONS (1)
  - BIPOLAR DISORDER [None]
